FAERS Safety Report 13605371 (Version 1)
Quarter: 2017Q2

REPORT INFORMATION
  Report Type: Spontaneous
  Country: US (occurrence: US)
  Receive Date: 20170602
  Receipt Date: 20170602
  Transmission Date: 20170830
  Serious: No
  Sender: FDA-Public Use
  Company Number: US-NOVEN PHARMACEUTICALS, INC.-US2016002523

PATIENT

DRUGS (4)
  1. DAYTRANA [Suspect]
     Active Substance: METHYLPHENIDATE
     Dosage: USING TWO, 15MG PATCHES TOGETHER, UNKNOWN
     Route: 062
     Dates: start: 20161026
  2. RISPERDAL [Concomitant]
     Active Substance: RISPERIDONE
  3. DAYTRANA [Suspect]
     Active Substance: METHYLPHENIDATE
     Indication: PRODUCT USED FOR UNKNOWN INDICATION
     Dosage: 30 MG, UNKNOWN
     Route: 062
     Dates: end: 20161025
  4. INTUNIV [Concomitant]
     Active Substance: GUANFACINE HYDROCHLORIDE

REACTIONS (5)
  - Wrong technique in product usage process [Not Recovered/Not Resolved]
  - Disturbance in social behaviour [Unknown]
  - Off label use [Unknown]
  - Psychomotor hyperactivity [Unknown]
  - Decreased appetite [Unknown]

NARRATIVE: CASE EVENT DATE: 20161026
